FAERS Safety Report 4293821-X (Version None)
Quarter: 2004Q1

REPORT INFORMATION
  Report Type: 
  Country: None (occurrence: None)
  Receive Date: 20040211
  Receipt Date: 20040211
  Transmission Date: 20041129
  Serious: Yes (Hospitalization)
  Sender: FDA-Public Use
  Company Number: None

PATIENT
  Age: 41 Year
  Sex: Female
  Weight: 79 kg

DRUGS (12)
  1. CISPLATIN [Suspect]
     Indication: CERVIX CARCINOMA
     Dosage: 40 MG/M2 = 70 MG X 1
     Dates: start: 20040114
  2. METHADONE HCL [Concomitant]
  3. CIPROFLOXACIN HCL [Concomitant]
  4. PREDNISONE [Concomitant]
  5. COMPAZINE [Concomitant]
  6. TRAZODONE HCL [Concomitant]
  7. CELEXA [Concomitant]
  8. MIRALAX [Concomitant]
  9. HM STOOL SOFTENER [Concomitant]
  10. IBUPROFEN [Concomitant]
  11. PERCOCET [Concomitant]
  12. ATIVAN [Concomitant]

REACTIONS (5)
  - BLOOD CREATININE INCREASED [None]
  - BONE MARROW DEPRESSION [None]
  - DEAFNESS [None]
  - NEUTROPHIL COUNT DECREASED [None]
  - THROMBOCYTOPENIA [None]
